FAERS Safety Report 9829946 (Version 1)
Quarter: 2014Q1

REPORT INFORMATION
  Report Type: Spontaneous
  Country: US (occurrence: US)
  Receive Date: 20140120
  Receipt Date: 20140120
  Transmission Date: 20141002
  Serious: Yes (Hospitalization, Other)
  Sender: FDA-Public Use
  Company Number: US-BAYER-2014-007364

PATIENT
  Age: 26 Year
  Sex: Female
  Weight: 64.85 kg

DRUGS (2)
  1. YAZ [Suspect]
  2. YASMIN [Suspect]

REACTIONS (3)
  - Pulmonary embolism [Recovering/Resolving]
  - Pulmonary embolism [None]
  - Deep vein thrombosis [Recovered/Resolved]
